FAERS Safety Report 21172027 (Version 1)
Quarter: 2022Q3

REPORT INFORMATION
  Report Type: Spontaneous
  Country: US (occurrence: US)
  Receive Date: 20220804
  Receipt Date: 20220804
  Transmission Date: 20221027
  Serious: No
  Sender: FDA-Public Use
  Company Number: US-BAYER-2022A105607

PATIENT
  Sex: Male

DRUGS (7)
  1. XARELTO [Suspect]
     Active Substance: RIVAROXABAN
  2. CLARITIN [Suspect]
     Active Substance: LORATADINE
     Dosage: 5 MG, BID
     Route: 048
  3. INLYTA [Suspect]
     Active Substance: AXITINIB
     Dosage: 5 MG, BID
     Route: 048
     Dates: start: 20220525
  4. LISINOPRIL [Concomitant]
     Active Substance: LISINOPRIL
  5. GLIPIZIDE [Concomitant]
     Active Substance: GLIPIZIDE
  6. CARVEDILOL [Concomitant]
     Active Substance: CARVEDILOL
  7. TORSEMIDE [Concomitant]
     Active Substance: TORSEMIDE

REACTIONS (4)
  - Hypertension [Recovering/Resolving]
  - Epistaxis [None]
  - Pruritus [None]
  - Drug ineffective [None]
